FAERS Safety Report 6928421-3 (Version None)
Quarter: 2010Q3

REPORT INFORMATION
  Report Type: 
  Country: None (occurrence: None)
  Receive Date: 20100817
  Receipt Date: 20100805
  Transmission Date: 20110219
  Serious: Yes (Other)
  Sender: FDA-Public Use
  Company Number: CL-PFIZER INC-2010096898

PATIENT
  Sex: Female

DRUGS (3)
  1. LYRICA [Suspect]
     Indication: BACK PAIN
     Dosage: 75 MG, 1X/DAY
     Route: 048
     Dates: start: 20100723, end: 20100724
  2. QUETIAPINE [Concomitant]
     Dosage: UNK
     Dates: start: 20080101
  3. VENLAFAXINE [Concomitant]
     Dosage: UNK
     Dates: start: 20080101

REACTIONS (5)
  - DIZZINESS [None]
  - DYSPNOEA [None]
  - HEADACHE [None]
  - TACHYCARDIA [None]
  - VISUAL IMPAIRMENT [None]
